FAERS Safety Report 24850451 (Version 2)
Quarter: 2025Q1

REPORT INFORMATION
  Report Type: Spontaneous
  Country: US (occurrence: US)
  Receive Date: 20250116
  Receipt Date: 20250227
  Transmission Date: 20250409
  Serious: No
  Sender: VERTEX
  Company Number: US-VERTEX PHARMACEUTICALS-2024-017989

PATIENT

DRUGS (1)
  1. TRIKAFTA [Suspect]
     Active Substance: ELEXACAFTOR\IVACAFTOR\TEZACAFTOR
     Indication: Cystic fibrosis
     Route: 048

REACTIONS (8)
  - Skin odour abnormal [Unknown]
  - Weight increased [Recovering/Resolving]
  - Oropharyngeal pain [Unknown]
  - Ear discomfort [Unknown]
  - Asthenia [Unknown]
  - Sneezing [Unknown]
  - Cough [Unknown]
  - Headache [Unknown]
